FAERS Safety Report 7602511-4 (Version None)
Quarter: 2011Q3

REPORT INFORMATION
  Report Type: 
  Country: None (occurrence: None)
  Receive Date: 20110701
  Receipt Date: 20110616
  Transmission Date: 20111222
  Serious: Yes (Hospitalization, Other)
  Sender: FDA-Public Use
  Company Number: 2010AC000320

PATIENT
  Sex: Female

DRUGS (1)
  1. DIGOXIN [Suspect]
     Indication: CARDIAC MURMUR
     Dosage: 0.125 MG;QD;PO
     Route: 048
     Dates: start: 19930901, end: 20081001

REACTIONS (16)
  - ASTHENIA [None]
  - ANGINA PECTORIS [None]
  - DEPRESSION [None]
  - ABASIA [None]
  - CARDIAC DISORDER [None]
  - PAIN [None]
  - ANXIETY [None]
  - ECONOMIC PROBLEM [None]
  - ACTIVITIES OF DAILY LIVING IMPAIRED [None]
  - MENTAL DISORDER [None]
  - MOVEMENT DISORDER [None]
  - DYSPNOEA [None]
  - DIZZINESS [None]
  - OEDEMA [None]
  - EMOTIONAL DISORDER [None]
  - QUALITY OF LIFE DECREASED [None]
